FAERS Safety Report 4976386-6 (Version None)
Quarter: 2006Q2

REPORT INFORMATION
  Report Type: 
  Country: None (occurrence: None)
  Receive Date: 20060412
  Receipt Date: 20060330
  Transmission Date: 20061013
  Serious: Yes (Hospitalization, Other)
  Sender: FDA-Public Use
  Company Number: 2006044561

PATIENT
  Age: 65 Year
  Sex: Male
  Weight: 70.3075 kg

DRUGS (7)
  1. VIAGRA [Suspect]
     Indication: ERECTILE DYSFUNCTION
     Dosage: 25 MG (25 MG, AS NECESSARY), ORAL
     Route: 048
  2. ALCOHOL (ETHANOL) [Suspect]
     Indication: ILL-DEFINED DISORDER
  3. VITAMINS (VITAMINS) [Suspect]
     Indication: ILL-DEFINED DISORDER
     Dates: end: 20060301
  4. ACETYLSALICYLIC ACID SRT [Concomitant]
  5. LIPITOR [Concomitant]
  6. NIASPAN [Concomitant]
  7. VASORETIC (ENALAPRIL MALEATE, HYDROCHLOROTHIAZIDE) [Concomitant]

REACTIONS (3)
  - CAROTID ARTERY DISEASE [None]
  - DRUG EFFECT DECREASED [None]
  - VISION BLURRED [None]
